FAERS Safety Report 17375973 (Version 1)
Quarter: 2020Q1

REPORT INFORMATION
  Report Type: Spontaneous
  Country: US (occurrence: US)
  Receive Date: 20200206
  Receipt Date: 20200206
  Transmission Date: 20200409
  Serious: No
  Sender: FDA-Public Use
  Company Number: US-ALLERGAN-1906129US

PATIENT
  Sex: Female
  Weight: 49.9 kg

DRUGS (4)
  1. ZOCOR [Concomitant]
     Active Substance: SIMVASTATIN
     Indication: BLOOD CHOLESTEROL
     Dosage: 80 MG, QD
     Route: 048
     Dates: start: 2016
  2. ALORA [Suspect]
     Active Substance: ESTRADIOL
     Indication: ALOPECIA
     Dosage: 0.05 MG, APPLY 1/2 A PATCH TWICE WEEKLY
     Route: 062
  3. CHANTIX [Concomitant]
     Active Substance: VARENICLINE TARTRATE
     Indication: TOBACCO USER
     Dosage: 0.5 MG TABLET QD ON DAY ONE AND ON DAY 4 TAKING TWICE A DAY
     Route: 048
     Dates: start: 20180513
  4. HYDROCODONE/ACETAMINOPHEN [Concomitant]
     Active Substance: ACETAMINOPHEN\HYDROCODONE
     Indication: PAIN
     Dosage: 7.5/325 MG TABLET FOUR TIMES A DAY
     Route: 048

REACTIONS (3)
  - Hypersensitivity [Unknown]
  - Off label use [Unknown]
  - Wrong technique in product usage process [Unknown]
